FAERS Safety Report 10006642 (Version 3)
Quarter: 2014Q2

REPORT INFORMATION
  Report Type: Spontaneous
  Country: US (occurrence: US)
  Receive Date: 20140313
  Receipt Date: 20140428
  Transmission Date: 20141212
  Serious: No
  Sender: FDA-Public Use
  Company Number: US-PFIZER INC-2014070150

PATIENT
  Age: 57 Year
  Sex: Female

DRUGS (10)
  1. SUTENT [Suspect]
     Indication: THYROID CANCER METASTATIC
     Dosage: 50 MG, UNK (50MG DAILY, 2 WKS ON, 1 WK OFF, REPEAT)
     Route: 048
     Dates: start: 20110712
  2. SUTENT [Suspect]
     Dosage: 25 MG, DAILY
  3. SUTENT [Suspect]
     Dosage: 50 MG, UNK (50 MG A DAY, FOUR WEEKS ON AND TWO WEEKS OFF)
     Dates: end: 20140130
  4. LISINOPRIL [Concomitant]
     Indication: BLOOD PRESSURE
     Dosage: 10 MG, 2X/DAY
     Dates: end: 20140206
  5. IBUPROFEN [Concomitant]
     Dosage: UNK
  6. INFLUENZA VACCINE [Concomitant]
     Dosage: UNK
     Route: 030
     Dates: start: 20131031
  7. CALCIUM [Concomitant]
     Dosage: UNK
  8. IRON [Concomitant]
     Dosage: UNK
  9. LEVOTHYROXINE [Concomitant]
     Dosage: UNK
  10. MAGIC MOUTHWASH [Concomitant]
     Dosage: UNK

REACTIONS (11)
  - Palmar-plantar erythrodysaesthesia syndrome [Recovered/Resolved]
  - Off label use [Unknown]
  - Neuropathy peripheral [Not Recovered/Not Resolved]
  - Disease progression [Unknown]
  - Thyroid cancer metastatic [Unknown]
  - Toxicity to various agents [Unknown]
  - Muscle spasms [Not Recovered/Not Resolved]
  - Weight decreased [Unknown]
  - Drug intolerance [Unknown]
  - Pain [Unknown]
  - Transaminases increased [Unknown]
